FAERS Safety Report 24756663 (Version 3)
Quarter: 2025Q3

REPORT INFORMATION
  Report Type: Report from Study
  Country: US (occurrence: US)
  Receive Date: 20241220
  Receipt Date: 20250717
  Transmission Date: 20251021
  Serious: No
  Sender: BRISTOL-MYERS SQUIBB COMPANY
  Company Number: US-BRISTOL-MYERS SQUIBB COMPANY-2024-197319

PATIENT
  Age: 68 Year
  Sex: Female
  Weight: 56.7 kg

DRUGS (2)
  1. REVLIMID [Suspect]
     Active Substance: LENALIDOMIDE
     Indication: Follicular lymphoma stage II
     Route: 048
  2. REVLIMID [Suspect]
     Active Substance: LENALIDOMIDE
     Dosage: STRENGTH-10MG, FREQUENCY 21 EVERY 28 DAY
     Route: 048

REACTIONS (4)
  - Cough [Unknown]
  - Rhinorrhoea [Unknown]
  - Rash [Unknown]
  - Weight fluctuation [Unknown]
